FAERS Safety Report 6647906-0 (Version None)
Quarter: 2010Q1

REPORT INFORMATION
  Report Type: 
  Country: None (occurrence: None)
  Receive Date: 20100324
  Receipt Date: 20100317
  Transmission Date: 20100710
  Serious: Yes (Hospitalization)
  Sender: FDA-Public Use
  Company Number: NZ-ASTRAZENECA-2010SE11897

PATIENT
  Age: 19 Year
  Sex: Male

DRUGS (4)
  1. OMEPRAZOLE [Suspect]
     Indication: GASTROINTESTINAL HAEMORRHAGE
     Route: 048
     Dates: start: 20071122, end: 20071214
  2. PARACETAMOL [Concomitant]
     Route: 048
  3. WARFARIN [Concomitant]
     Dosage: DAILY
     Route: 048
     Dates: start: 20071122
  4. PHENOXYMETHYLPENICILLIN [Concomitant]
     Indication: RENAL FAILURE
     Route: 048

REACTIONS (1)
  - RENAL FAILURE ACUTE [None]
